FAERS Safety Report 8965509 (Version 1)
Quarter: 2012Q4

REPORT INFORMATION
  Report Type: Spontaneous
  Country: US (occurrence: None)
  Receive Date: 20121205
  Receipt Date: 20121205
  Transmission Date: 20130627
  Serious: Yes (Hospitalization)
  Sender: FDA-Public Use
  Company Number: 2012NUEUSA00144

PATIENT
  Sex: Female

DRUGS (1)
  1. NUEDEXTA [Suspect]
     Indication: PSEUDOBULBAR AFFECT
     Dosage: Nuedexta(Dextromethorpan hydrobromide 20mg, Quinidine Sulfate 10 mg) Capsule, 20/10mg

REACTIONS (1)
  - Blood calcium decreased [None]
